FAERS Safety Report 24273174 (Version 1)
Quarter: 2024Q3

REPORT INFORMATION
  Report Type: Spontaneous
  Country: FR (occurrence: FR)
  Receive Date: 20240902
  Receipt Date: 20240902
  Transmission Date: 20241017
  Serious: Yes (Hospitalization)
  Sender: ACCORD
  Company Number: None

PATIENT
  Age: 52 Year
  Sex: Female
  Weight: 69 kg

DRUGS (1)
  1. PACLITAXEL [Suspect]
     Active Substance: PACLITAXEL
     Indication: Breast cancer
     Dates: start: 20240521, end: 20240521

REACTIONS (2)
  - Rash erythematous [Recovered/Resolved]
  - Allergy test positive [Recovered/Resolved]

NARRATIVE: CASE EVENT DATE: 20240528
